FAERS Safety Report 6790914-X (Version None)
Quarter: 2010Q2

REPORT INFORMATION
  Report Type: 
  Country: None (occurrence: None)
  Receive Date: 20100624
  Receipt Date: 20100616
  Transmission Date: 20101027
  Serious: Yes (Hospitalization)
  Sender: FDA-Public Use
  Company Number: B0662134A

PATIENT
  Age: 72 Year
  Sex: Female

DRUGS (11)
  1. ARIXTRA [Suspect]
     Indication: DRUG USE FOR UNKNOWN INDICATION
     Dosage: 2.5MG PER DAY
     Route: 058
     Dates: end: 20100526
  2. PREDNISOLONE [Suspect]
     Indication: DRUG USE FOR UNKNOWN INDICATION
     Dosage: 5MG PER DAY
     Route: 048
  3. FOSAMAX [Concomitant]
     Dosage: 70MG WEEKLY
     Route: 048
  4. CALCIMAGON-D3 [Concomitant]
     Route: 048
  5. NEXIUM [Concomitant]
     Dosage: 20MG PER DAY
     Route: 048
  6. PLAQUENIL [Concomitant]
     Dosage: 400MG PER DAY
     Route: 048
  7. INSIDON [Concomitant]
     Dosage: 50MG TWICE PER DAY
     Route: 048
  8. SERESTA [Concomitant]
     Dosage: 15MG PER DAY
     Route: 048
  9. LYRICA [Concomitant]
     Dosage: 225MG PER DAY
     Route: 048
  10. TRAMAL [Concomitant]
     Route: 048
  11. IMOVANE [Concomitant]
     Dosage: 7.5MG PER DAY
     Route: 048

REACTIONS (2)
  - ARTHRITIS [None]
  - INTRACRANIAL HAEMATOMA [None]
